FAERS Safety Report 21800688 (Version 2)
Quarter: 2023Q1

REPORT INFORMATION
  Report Type: Spontaneous
  Country: DE (occurrence: DE)
  Receive Date: 20221230
  Receipt Date: 20230111
  Transmission Date: 20230417
  Serious: Yes (Death, Life-Threatening, Hospitalization, Other)
  Sender: FDA-Public Use
  Company Number: DE-TORRENT-00023926

PATIENT
  Age: 16 Year
  Sex: Male

DRUGS (3)
  1. VORICONAZOLE [Interacting]
     Active Substance: VORICONAZOLE
     Indication: Fusarium infection
     Dosage: UNK
     Route: 042
  2. TACROLIMUS [Interacting]
     Active Substance: TACROLIMUS
     Indication: Graft versus host disease
     Dosage: UNK
     Route: 065
  3. AMPHOTERICIN B [Concomitant]
     Active Substance: AMPHOTERICIN B
     Indication: Fusarium infection
     Dosage: UNK
     Route: 065

REACTIONS (15)
  - Cerebral ischaemia [Fatal]
  - Hemiparesis [Unknown]
  - Intracardiac thrombus [Unknown]
  - Hypovolaemic shock [Unknown]
  - Splenic rupture [Unknown]
  - Embolic cerebral infarction [Unknown]
  - Fungal endocarditis [Unknown]
  - Inflammatory marker increased [Unknown]
  - Pulmonary oedema [Unknown]
  - Capillary leak syndrome [Unknown]
  - Acute kidney injury [Unknown]
  - Drug interaction [Unknown]
  - Oedema peripheral [Unknown]
  - Pyrexia [Unknown]
  - Drug ineffective [Unknown]
